FAERS Safety Report 10195079 (Version 2)
Quarter: 2014Q2

REPORT INFORMATION
  Report Type: Report from Study
  Country: NZ (occurrence: NZ)
  Receive Date: 20140526
  Receipt Date: 20140623
  Transmission Date: 20141212
  Serious: Yes (Life-Threatening, Hospitalization, Other)
  Sender: FDA-Public Use
  Company Number: PHHY2014NZ062642

PATIENT
  Age: 31 Year
  Sex: Male

DRUGS (3)
  1. CLOZARIL [Suspect]
     Indication: SCHIZOPHRENIA
     Dosage: UKN
     Dates: start: 20140319
  2. CLOZARIL [Suspect]
     Dosage: 125 MG, TWICE A DAY
     Route: 048
     Dates: start: 20140326, end: 20140410
  3. OMEPRAZOLE [Concomitant]
     Indication: GASTROOESOPHAGEAL REFLUX DISEASE
     Dosage: 20 MG, ONCE A DAY
     Route: 048
     Dates: start: 20140408

REACTIONS (6)
  - Myocarditis [Recovering/Resolving]
  - Tachycardia [Unknown]
  - Body temperature increased [Unknown]
  - Chest pain [Unknown]
  - Troponin increased [Unknown]
  - Tachyarrhythmia [Unknown]
